FAERS Safety Report 21383797 (Version 2)
Quarter: 2022Q4

REPORT INFORMATION
  Report Type: Spontaneous
  Country: US (occurrence: US)
  Receive Date: 20220928
  Receipt Date: 20221028
  Transmission Date: 20230113
  Serious: Yes (Hospitalization, Other)
  Sender: FDA-Public Use
  Company Number: US-BRISTOL-MYERS SQUIBB COMPANY-2022-111826

PATIENT
  Age: 72 Year
  Sex: Female

DRUGS (1)
  1. POMALYST [Suspect]
     Active Substance: POMALIDOMIDE
     Indication: Product used for unknown indication
     Dosage: TAKE 1 CAPSULE BY MOUTH EVERY DAY FOR 21 DAYS, FOLLOWED BY 7 DAYS OFF.
     Route: 048
     Dates: start: 20170103

REACTIONS (7)
  - Neuropathy peripheral [Unknown]
  - Anxiety [Recovered/Resolved]
  - Heart rate decreased [Unknown]
  - Peripheral coldness [Unknown]
  - Onychoclasis [Unknown]
  - Heart rate irregular [Recovered/Resolved]
  - Blood pressure increased [Recovered/Resolved]
